FAERS Safety Report 8619386-7 (Version None)
Quarter: 2012Q3

REPORT INFORMATION
  Report Type: 
  Country: None (occurrence: None)
  Receive Date: 20120824
  Receipt Date: 20120816
  Transmission Date: 20120928
  Serious: Yes (Hospitalization)
  Sender: FDA-Public Use
  Company Number: US-BRISTOL-MYERS SQUIBB COMPANY-16862849

PATIENT
  Age: 74 Year
  Sex: Male
  Weight: 102 kg

DRUGS (3)
  1. PACLITAXEL [Suspect]
     Indication: BRONCHIOLOALVEOLAR CARCINOMA
     Dosage: LAST DOSE: 02AUG12
     Route: 042
     Dates: start: 20120530
  2. CARBOPLATIN [Suspect]
     Indication: BRONCHIOLOALVEOLAR CARCINOMA
     Dosage: LAST DOSE: 02AUG12
     Route: 042
     Dates: start: 20120530
  3. BEVACIZUMAB [Suspect]
     Indication: BRONCHIOLOALVEOLAR CARCINOMA
     Dosage: LAST DOSE: 02AUG12
     Route: 042
     Dates: start: 20120530

REACTIONS (1)
  - CHRONIC OBSTRUCTIVE PULMONARY DISEASE [None]
